FAERS Safety Report 14225809 (Version 3)
Quarter: 2018Q1

REPORT INFORMATION
  Report Type: Spontaneous
  Country: CA (occurrence: CA)
  Receive Date: 20171127
  Receipt Date: 20180319
  Transmission Date: 20180508
  Serious: Yes (Other)
  Sender: FDA-Public Use
  Company Number: CA-SHIRE-CA201730048

PATIENT

DRUGS (10)
  1. VITAMIN B12 [Concomitant]
     Active Substance: CYANOCOBALAMIN
     Indication: MALABSORPTION
  2. CENTRUM                            /07499601/ [Concomitant]
     Indication: MALABSORPTION
  3. REVESTIVE [Suspect]
     Active Substance: TEDUGLUTIDE
     Indication: SHORT-BOWEL SYNDROME
     Dosage: 0.05 MG/KG (2.5 MG), 1X/DAY:QD
     Route: 065
     Dates: start: 20160805, end: 20180130
  4. VITAMIN D [Concomitant]
     Active Substance: CHOLECALCIFEROL
     Indication: MALABSORPTION
  5. CREON [Concomitant]
     Active Substance: PANCRELIPASE AMYLASE\PANCRELIPASE LIPASE\PANCRELIPASE PROTEASE
     Indication: PANCREATIC FAILURE
  6. LOPERAMIDE [Concomitant]
     Active Substance: LOPERAMIDE
     Indication: DIARRHOEA
  7. LANSOPRAZOLE. [Concomitant]
     Active Substance: LANSOPRAZOLE
     Indication: GASTROOESOPHAGEAL REFLUX DISEASE
  8. ZINC. [Concomitant]
     Active Substance: ZINC
     Indication: PRODUCT USED FOR UNKNOWN INDICATION
  9. CALCIUM [Concomitant]
     Active Substance: CALCIUM
     Indication: OSTEOPENIA
  10. MAGNESIUM-ROUGIER [Concomitant]
     Active Substance: MAGNESIUM GLUCEPTATE
     Indication: MALABSORPTION

REACTIONS (4)
  - Hydronephrosis [Unknown]
  - Cyst [Not Recovered/Not Resolved]
  - Peripheral swelling [Unknown]
  - Ureteric obstruction [Unknown]

NARRATIVE: CASE EVENT DATE: 20180108
